FAERS Safety Report 6722086-1 (Version None)
Quarter: 2010Q2

REPORT INFORMATION
  Report Type: 
  Country: None (occurrence: None)
  Receive Date: 20100512
  Receipt Date: 20100504
  Transmission Date: 20101027
  Serious: Yes (Hospitalization)
  Sender: FDA-Public Use
  Company Number: US-ELI_LILLY_AND_COMPANY-US201003006423

PATIENT
  Sex: Male

DRUGS (21)
  1. HUMULIN R [Suspect]
     Indication: TYPE 2 DIABETES MELLITUS
     Dates: start: 20090327
  2. HUMULIN R [Suspect]
     Dosage: 200 U, EACH MORNING
  3. HUMULIN R [Suspect]
     Dosage: 40 U, OTHER
  4. HUMULIN R [Suspect]
     Dosage: 37 U, EACH EVENING
  5. LANTUS [Concomitant]
     Dosage: 62 U, EACH MORNING
  6. LANTUS [Concomitant]
     Dosage: 55 U, EACH EVENING
  7. FLEXERIL [Concomitant]
  8. GLUCOSE [Concomitant]
  9. LASIX [Concomitant]
  10. LORTAB [Concomitant]
  11. METOPROLOL TARTRATE [Concomitant]
  12. NEXIUM [Concomitant]
  13. NITROFURANTOIN [Concomitant]
  14. ALBUTEROL [Concomitant]
  15. AVODART [Concomitant]
  16. AMITRIPTLINE HYDROCHLORIDE TAB [Concomitant]
  17. ANTIVERT [Concomitant]
  18. FERROUS SULFATE TAB [Concomitant]
  19. REQUIP [Concomitant]
  20. POTASSIUM [Concomitant]
  21. SYNTHROID [Concomitant]

REACTIONS (4)
  - BENIGN PROSTATIC HYPERPLASIA [None]
  - HEPATOMEGALY [None]
  - INTERCEPTED MEDICATION ERROR [None]
  - URINARY TRACT INFECTION STAPHYLOCOCCAL [None]
